FAERS Safety Report 9414722 (Version 1)
Quarter: 2013Q3

REPORT INFORMATION
  Report Type: Spontaneous
  Country: US (occurrence: US)
  Receive Date: 20130723
  Receipt Date: 20130723
  Transmission Date: 20140515
  Serious: Yes (Hospitalization, Disabling)
  Sender: FDA-Public Use
  Company Number: US-ASTRAZENECA-2013SE52572

PATIENT
  Age: 518 Month
  Sex: Female

DRUGS (27)
  1. NEXIUM [Suspect]
     Indication: GASTROOESOPHAGEAL REFLUX DISEASE
     Route: 048
  2. NEXIUM [Suspect]
     Indication: GASTROOESOPHAGEAL REFLUX DISEASE
     Route: 048
     Dates: start: 2011
  3. OMEPRAZOLE [Suspect]
     Dosage: 1 CAP EVERY DAY IF NEEDED, ON AN EMPTY STOMACH BEFORE THE MEAL
     Route: 048
     Dates: start: 20070312
  4. TUMS [Concomitant]
  5. MILK OF MAGNESIA [Concomitant]
  6. PEPTO-BISMOL [Concomitant]
  7. ESTROGEN CONJUGATED [Concomitant]
     Route: 048
     Dates: start: 200710
  8. OXYBUTYNIN CHLORIDE [Concomitant]
     Indication: BLADDER SPASM
     Route: 048
     Dates: start: 200707
  9. TERAZOSIN HCL [Concomitant]
     Route: 048
     Dates: start: 200711
  10. SIMVASTATIN [Concomitant]
     Indication: BLOOD CHOLESTEROL
     Route: 048
     Dates: start: 200710
  11. LORATADINE [Concomitant]
     Indication: MULTIPLE ALLERGIES
     Route: 048
  12. LORATADINE [Concomitant]
     Indication: SINUS DISORDER
     Route: 048
  13. BACLOFEN [Concomitant]
     Indication: MUSCLE SPASMS
     Route: 048
  14. CYCLOBENZAPRINE HCL [Concomitant]
     Indication: MUSCLE SPASMS
     Route: 048
  15. DIVALPROEX NA [Concomitant]
     Route: 048
     Dates: start: 200711
  16. PENTOSAN POLYSULFATE NA [Concomitant]
     Route: 048
     Dates: start: 200712
  17. BUPROPION HCL [Concomitant]
     Route: 048
     Dates: start: 200707
  18. AMITRIPTYLINE HCL [Concomitant]
     Route: 048
     Dates: start: 200806
  19. HCTZ/ TRIAMTERENE [Concomitant]
     Indication: BLOOD PRESSURE
     Dosage: 25/ 37.5 MG, HALF TABLET EVERY MORNING
     Route: 048
     Dates: start: 200806
  20. AMLODIPINE BESYLATE [Concomitant]
     Indication: BLOOD PRESSURE
     Route: 048
     Dates: start: 20100916
  21. CETRIZINE [Concomitant]
     Indication: MULTIPLE ALLERGIES
     Route: 048
     Dates: start: 20100916
  22. LISINOPRIL/ HCTZ [Concomitant]
     Indication: BLOOD PRESSURE
     Dosage: 10/ 12.5 MG, EVERY DAY
     Route: 048
     Dates: start: 20101123
  23. PRAZOSIN HCL [Concomitant]
     Indication: NIGHTMARE
     Route: 048
     Dates: start: 20130501
  24. TRAZODONE [Concomitant]
     Route: 048
     Dates: start: 20130501
  25. VENLAFAXINE CR [Concomitant]
     Dosage: 1CAP EVERY MORNING FOR 7 DAYS,
     Route: 048
     Dates: start: 20130501
  26. VENLAFAXINE CR [Concomitant]
     Dosage: 2 CAP EVERY MORNING FOR 14 DAYS,
     Route: 048
  27. VENLAFAXINE CR [Concomitant]
     Dosage: 4 CAP EVERY MORNING
     Route: 048

REACTIONS (24)
  - Post-traumatic stress disorder [Unknown]
  - Anxiety [Unknown]
  - Hysterectomy [Unknown]
  - Ear disorder [Unknown]
  - Exostosis [Unknown]
  - Gastric disorder [Unknown]
  - Hypoacusis [Unknown]
  - Migraine [Unknown]
  - Back disorder [Unknown]
  - Pain in extremity [Unknown]
  - Meniscus injury [Unknown]
  - Carpal tunnel syndrome [Unknown]
  - Foot fracture [Unknown]
  - Arthritis [Unknown]
  - Glucose tolerance impaired [Unknown]
  - Scoliosis [Unknown]
  - Sickle cell trait [Unknown]
  - Stress [Unknown]
  - Plantar fasciitis [Unknown]
  - Foot deformity [Unknown]
  - Arthralgia [Unknown]
  - Metatarsalgia [Unknown]
  - Multiple allergies [Unknown]
  - Depression [Unknown]
